FAERS Safety Report 18809723 (Version 2)
Quarter: 2021Q1

REPORT INFORMATION
  Report Type: Report from Study
  Country: US (occurrence: US)
  Receive Date: 20210129
  Receipt Date: 20210309
  Transmission Date: 20210419
  Serious: Yes (Death, Hospitalization)
  Sender: FDA-Public Use
  Company Number: US-KARYOPHARM-2021KPT000089

PATIENT
  Age: 64 Year
  Sex: Male
  Weight: 89.4 kg

DRUGS (2)
  1. SELINEXOR [Suspect]
     Active Substance: SELINEXOR
     Indication: LUNG ADENOCARCINOMA
     Dosage: 60 MG, WEEKLY
     Route: 048
     Dates: start: 20200915, end: 20210105
  2. DOCETAXEL. [Suspect]
     Active Substance: DOCETAXEL
     Indication: LUNG ADENOCARCINOMA
     Dosage: 60 MG/M2, 1X/3 WEEKS
     Route: 042
     Dates: start: 20200915, end: 20210105

REACTIONS (1)
  - Respiratory failure [Fatal]

NARRATIVE: CASE EVENT DATE: 20210117
